FAERS Safety Report 9813915 (Version 1)
Quarter: 2014Q1

REPORT INFORMATION
  Report Type: Spontaneous
  Country: US (occurrence: US)
  Receive Date: 20140113
  Receipt Date: 20140113
  Transmission Date: 20141002
  Serious: Yes (Other)
  Sender: FDA-Public Use
  Company Number: US-GLAXOSMITHKLINE-A1056289A

PATIENT
  Age: 48 Year
  Sex: Female

DRUGS (1)
  1. ALLI [Suspect]
     Indication: WEIGHT DECREASED
     Route: 048
     Dates: start: 201401, end: 20140109

REACTIONS (3)
  - Haematochezia [Recovered/Resolved]
  - Anorectal discomfort [Not Recovered/Not Resolved]
  - Feeling abnormal [Recovering/Resolving]
